FAERS Safety Report 6974427-8 (Version None)
Quarter: 2010Q3

REPORT INFORMATION
  Report Type: 
  Country: None (occurrence: None)
  Receive Date: 20100909
  Receipt Date: 20080314
  Transmission Date: 20110219
  Serious: No
  Sender: FDA-Public Use
  Company Number: US-WYE-H03142008

PATIENT
  Sex: Female
  Weight: 84.44 kg

DRUGS (1)
  1. PROTONIX [Suspect]
     Indication: GASTROOESOPHAGEAL REFLUX DISEASE
     Route: 048
     Dates: start: 20080207, end: 20080307

REACTIONS (3)
  - ALOPECIA [None]
  - FLUID RETENTION [None]
  - WEIGHT LOSS POOR [None]
